FAERS Safety Report 7018426-9 (Version None)
Quarter: 2010Q3

REPORT INFORMATION
  Report Type: 
  Country: None (occurrence: None)
  Receive Date: 20100924
  Receipt Date: 20100909
  Transmission Date: 20110219
  Serious: Yes (Death, Hospitalization)
  Sender: FDA-Public Use
  Company Number: 1000016321

PATIENT
  Sex: Male
  Weight: 79 kg

DRUGS (36)
  1. MEMANTINE HCL [Suspect]
     Indication: DEMENTIA ALZHEIMER'S TYPE
     Dosage: 20 MG (20 MG, 1 IN 1 D), ORAL
     Route: 048
     Dates: start: 20050719, end: 20060307
  2. BLINDED INVESTIGATIONAL MEDICINAL PRODUCT (BLINDED INVESTIGATIONAL MED [Concomitant]
  3. REMINYL (GALANTAMINE) (GALANTAMINE) [Concomitant]
  4. VITAMIN E (VITAMIN E) (VITAMIN E) [Concomitant]
  5. ASAPHEN (ACETYLSALICYLIC ACID) (ACETYLSALICYLIC ACID) [Concomitant]
  6. EFFEXOR (VENLAFAXINE) (VENLAFAXINE) [Concomitant]
  7. GLUCOSAMINE (GLUCOSAMINE) (GLUCOSAMINE) [Concomitant]
  8. XALATAN [Concomitant]
  9. LANOXIN (DIGOXIN) (DIGOXIN) [Concomitant]
  10. NITRO PATCH (GLYCERYL TRINITRATE) (GLYCERYL TRINITRATE) [Concomitant]
  11. LASIX [Concomitant]
  12. K-DUR (POTASSIUM CHLORIDE) (POTASSIUM CHLORIDE) [Concomitant]
  13. COLACE (DOCUSATE SODIUM) (DOCUSATE SODIUM) [Concomitant]
  14. VENTOLINE (SALBUTAMOL) (SALBUTAMOL) [Concomitant]
  15. GRAVOL (DIMENHYDRINATE) (DIMENHYDRINATE) [Concomitant]
  16. SENOKOT (SENOKOT) (SENOKOT) [Concomitant]
  17. TYLENOL (PARACETAMOL) (PARACETAMOL) [Concomitant]
  18. LARGACTIL (CHLORPROMAZINE HYDROCHLORIDE) (CHLORPROMAZINE HYDROCHLORIDE [Concomitant]
  19. PANTOLOC (PANTOPRAZOLE) (PANTOPRAZOLE) [Concomitant]
  20. MAXERAN (METOCLOPRAMIDE HYDROCHLORIDE) (METOCLOPRAMIDE HYDROCHLORIDE) [Concomitant]
  21. DILAUDID (HYDROMORPHONE HYDROCHLORIDE) (HYDROMORPHONE HYDROCHLORIDE) [Concomitant]
  22. VANCOMYCIN (VANCOMYCIN) (VANCOMYCIN) [Concomitant]
  23. ATIVAN [Concomitant]
  24. CLINDAMYCIN (CLINDAMYCIN) (CLINDAMYCIN) [Concomitant]
  25. COMBIVENT (ALBUTEROL, IPRATROPIUM) (ALBUTEROL, IPRATROPIUM) [Concomitant]
  26. LOPRESSOR (METOPROLOL TARTRATE) (METOPROLOL TARTRATE) [Concomitant]
  27. SOLUMEDROL (METHYLPREDNISOLONE SODIUM SUCCINATE) (METHYLPREDNISOLONE S [Concomitant]
  28. CORDARONE [Concomitant]
  29. RYTHMOL [Concomitant]
  30. CARDIZEM (DILTIAZEM) (DILTIAZEM) [Concomitant]
  31. LACTULOSE (LACTULOSE) (LACTULOSE) [Concomitant]
  32. CIPROFLOXACIN [Concomitant]
  33. FLAGYL (METRONIDAZOLE) (METRONIDAZOLE) [Concomitant]
  34. AMPICILLIN (AMPICILLIN) (AMPICILLIN) [Concomitant]
  35. GENTAMICIN [Concomitant]
  36. HALDOL (HALOPERIDOL) (HALOPERIDOL) [Concomitant]

REACTIONS (8)
  - BRONCHOPNEUMONIA [None]
  - CHEST PAIN [None]
  - HAEMOGLOBIN DECREASED [None]
  - HICCUPS [None]
  - NAUSEA [None]
  - OESOPHAGEAL CARCINOMA [None]
  - UNEVALUABLE EVENT [None]
  - VOMITING [None]
